FAERS Safety Report 16826906 (Version 1)
Quarter: 2019Q3

REPORT INFORMATION
  Report Type: Report from Study
  Country: BR (occurrence: BR)
  Receive Date: 20190919
  Receipt Date: 20190919
  Transmission Date: 20191005
  Serious: Yes (Other)
  Sender: FDA-Public Use
  Company Number: BR-BIOGEN-2017BI00369402

PATIENT
  Sex: Female
  Weight: 78 kg

DRUGS (1)
  1. AVONEX [Suspect]
     Active Substance: INTERFERON BETA-1A
     Indication: MULTIPLE SCLEROSIS
     Route: 050
     Dates: start: 20090801

REACTIONS (15)
  - Varicose vein [Not Recovered/Not Resolved]
  - Varicophlebitis [Not Recovered/Not Resolved]
  - Limb injury [Not Recovered/Not Resolved]
  - Injection site inflammation [Not Recovered/Not Resolved]
  - Injection site pain [Not Recovered/Not Resolved]
  - Extremity necrosis [Recovered/Resolved]
  - Visual impairment [Not Recovered/Not Resolved]
  - Joint dislocation [Recovered/Resolved]
  - Injection site bruising [Not Recovered/Not Resolved]
  - Injection site induration [Not Recovered/Not Resolved]
  - Pain in extremity [Not Recovered/Not Resolved]
  - Meningioma [Not Recovered/Not Resolved]
  - Dermal cyst [Not Recovered/Not Resolved]
  - Diplopia [Not Recovered/Not Resolved]
  - Rash macular [Not Recovered/Not Resolved]

NARRATIVE: CASE EVENT DATE: 2014
